FAERS Safety Report 8598017-9 (Version None)
Quarter: 2012Q3

REPORT INFORMATION
  Report Type: 
  Country: None (occurrence: None)
  Receive Date: 20120816
  Receipt Date: 20120807
  Transmission Date: 20120928
  Serious: Yes (Life-Threatening, Hospitalization)
  Sender: FDA-Public Use
  Company Number: US-BRISTOL-MYERS SQUIBB COMPANY-16841603

PATIENT
  Age: 35 Year
  Sex: Male

DRUGS (8)
  1. CARVEDILOL [Concomitant]
  2. OLANZAPINE [Concomitant]
  3. REYATAZ [Suspect]
  4. EXFORGE [Concomitant]
     Dosage: DOSE:EXFORGE 10/20MG EVERY DAY
  5. METFORMIN HYDROCHLORIDE [Concomitant]
  6. RITONAVIR [Concomitant]
  7. IBUPROFEN [Concomitant]
     Indication: PAIN
  8. TRUVADA [Concomitant]

REACTIONS (1)
  - ROAD TRAFFIC ACCIDENT [None]
